FAERS Safety Report 7983875-9 (Version None)
Quarter: 2011Q4

REPORT INFORMATION
  Report Type: 
  Country: None (occurrence: None)
  Receive Date: 20111216
  Receipt Date: 20111208
  Transmission Date: 20120403
  Serious: No
  Sender: FDA-Public Use
  Company Number: US-BIOGENIDEC-2011BI046808

PATIENT
  Sex: Male

DRUGS (1)
  1. TYSABRI [Suspect]
     Indication: MULTIPLE SCLEROSIS
     Route: 042
     Dates: start: 20060918

REACTIONS (7)
  - GAIT DISTURBANCE [None]
  - PARAESTHESIA [None]
  - DYSARTHRIA [None]
  - SLOW SPEECH [None]
  - ANGER [None]
  - DISTURBANCE IN ATTENTION [None]
  - AMNESIA [None]
